FAERS Safety Report 5585984-0 (Version None)
Quarter: 2007Q4

REPORT INFORMATION
  Report Type: 
  Country: None (occurrence: None)
  Receive Date: 20071205
  Receipt Date: 20070108
  Transmission Date: 20080405
  Serious: Yes (Life-Threatening, Hospitalization)
  Sender: FDA-Public Use
  Company Number: HQWYE120111JAN07

PATIENT
  Age: 58 Year
  Sex: Female
  Weight: 82.17 kg

DRUGS (11)
  1. EFFEXOR XR [Suspect]
     Indication: DEPRESSION
     Dosage: SEE IMAGE
     Route: 048
     Dates: start: 20060101, end: 20060101
  2. EFFEXOR XR [Suspect]
     Indication: PAIN
     Dosage: SEE IMAGE
     Route: 048
     Dates: start: 20060101, end: 20060101
  3. EFFEXOR XR [Suspect]
     Indication: DEPRESSION
     Dosage: SEE IMAGE
     Route: 048
     Dates: start: 20060101, end: 20060101
  4. EFFEXOR XR [Suspect]
     Indication: PAIN
     Dosage: SEE IMAGE
     Route: 048
     Dates: start: 20060101, end: 20060101
  5. EFFEXOR XR [Suspect]
     Indication: DEPRESSION
     Dosage: SEE IMAGE
     Route: 048
     Dates: start: 20061101, end: 20060101
  6. EFFEXOR XR [Suspect]
     Indication: PAIN
     Dosage: SEE IMAGE
     Route: 048
     Dates: start: 20061101, end: 20060101
  7. XANAX [Suspect]
     Indication: ANXIETY
     Dosage: 2 MG 1/2 EVERY 8 HOURS PRN, ORAL
     Route: 048
  8. SYNTHROID [Concomitant]
  9. LORTAB [Concomitant]
  10. ARTHROTEC [Concomitant]
  11. BONTRIL PDM (PHENDIMETRAZINE TARTRATE) [Concomitant]

REACTIONS (1)
  - SUICIDE ATTEMPT [None]
